FAERS Safety Report 5826596-0 (Version None)
Quarter: 2008Q3

REPORT INFORMATION
  Report Type: 
  Country: None (occurrence: None)
  Receive Date: 20080728
  Receipt Date: 20080728
  Transmission Date: 20090109
  Serious: Yes (Life-Threatening, Disabling)
  Sender: FDA-Public Use
  Company Number: None

PATIENT
  Age: 34 Year
  Sex: Female
  Weight: 61.2356 kg

DRUGS (1)
  1. VARENICLINE STARTING MONTH PACK;0.5 AND 1 MG, PFIZER [Suspect]
     Indication: SMOKING CESSATION THERAPY
     Dosage: 0.5 AND 1 MG TABLETS QD OR BID PO
     Route: 048
     Dates: start: 20080615, end: 20080706

REACTIONS (11)
  - AGITATION [None]
  - ANGER [None]
  - DEPRESSION [None]
  - EMOTIONAL DISORDER [None]
  - FEELING ABNORMAL [None]
  - HOSTILITY [None]
  - IRRITABILITY [None]
  - PRURITUS [None]
  - SUICIDAL IDEATION [None]
  - VERBAL ABUSE [None]
  - VIOLENCE-RELATED SYMPTOM [None]
